FAERS Safety Report 5336034-2 (Version None)
Quarter: 2007Q1

REPORT INFORMATION
  Report Type: 
  Country: None (occurrence: None)
  Receive Date: 20070302
  Receipt Date: 20061213
  Transmission Date: 20070707
  Serious: No
  Sender: FDA-Public Use
  Company Number: 2006MP001283

PATIENT
  Age: 70 Year
  Sex: Male
  Weight: 61 kg

DRUGS (1)
  1. DACOGEN [Suspect]
     Indication: MYELODYSPLASTIC SYNDROME
     Dosage: 40 MG; QD; IV
     Route: 042
     Dates: start: 20061212

REACTIONS (3)
  - OFF LABEL USE [None]
  - PYREXIA [None]
  - WHITE BLOOD CELL COUNT DECREASED [None]
